FAERS Safety Report 21730684 (Version 1)
Quarter: 2022Q4

REPORT INFORMATION
  Report Type: Report from Study
  Country: KR (occurrence: KR)
  Receive Date: 20221215
  Receipt Date: 20221215
  Transmission Date: 20230113
  Serious: Yes (Hospitalization)
  Sender: FDA-Public Use
  Company Number: KR-BRISTOL-MYERS SQUIBB COMPANY-2022-153451

PATIENT
  Age: 59 Year
  Sex: Male
  Weight: 58 kg

DRUGS (13)
  1. NIVOLUMAB [Suspect]
     Active Substance: NIVOLUMAB
     Indication: Hepatocellular carcinoma
     Dates: start: 20221103, end: 20221103
  2. NIVOLUMAB [Suspect]
     Active Substance: NIVOLUMAB
     Dates: start: 20221201, end: 20221201
  3. BETMIGA PR [Concomitant]
     Indication: Product used for unknown indication
     Route: 048
     Dates: start: 202110
  4. OXYCODONE HYDROCHLORIDE [Concomitant]
     Active Substance: OXYCODONE HYDROCHLORIDE
     Indication: Prophylaxis
     Route: 048
     Dates: start: 20221116
  5. FENTADUR PATCH [Concomitant]
     Indication: Prophylaxis
     Route: 050
     Dates: start: 20221117
  6. GODEX [Concomitant]
     Indication: Adverse event
     Route: 048
     Dates: start: 20221201
  7. GLUCOPHAGE TAB [Concomitant]
     Indication: Product used for unknown indication
     Route: 048
     Dates: start: 2018
  8. URSODIOL [Concomitant]
     Active Substance: URSODIOL
     Indication: Adverse event
     Route: 048
     Dates: start: 20221201
  9. PENNEL [Concomitant]
     Indication: Product used for unknown indication
     Route: 048
     Dates: start: 202103
  10. CENTIREX SILVER ADVANCE TAB [Concomitant]
     Indication: Product used for unknown indication
     Route: 048
     Dates: start: 202103
  11. JANUVIA TAB. [Concomitant]
     Indication: Product used for unknown indication
     Route: 048
     Dates: start: 2018
  12. DIAMICRON MR TAB [Concomitant]
     Indication: Product used for unknown indication
     Route: 048
     Dates: start: 2018
  13. SYNTHYROID TAB [Concomitant]
     Indication: Product used for unknown indication
     Route: 048
     Dates: start: 202107

REACTIONS (1)
  - Pyrexia [Not Recovered/Not Resolved]

NARRATIVE: CASE EVENT DATE: 20221214
